FAERS Safety Report 7573886-X (Version None)
Quarter: 2011Q2

REPORT INFORMATION
  Report Type: 
  Country: None (occurrence: None)
  Receive Date: 20110627
  Receipt Date: 20110607
  Transmission Date: 20111010
  Serious: Yes (Hospitalization, Congenital Anomaly)
  Sender: FDA-Public Use
  Company Number: A0932968A

PATIENT
  Sex: Female
  Weight: 1 kg

DRUGS (2)
  1. MACROBID [Concomitant]
     Dates: end: 20070304
  2. PAROXETINE HCL [Suspect]
     Route: 064

REACTIONS (4)
  - NEPHROCALCINOSIS [None]
  - DRUG EXPOSURE DURING PREGNANCY [None]
  - CONGENITAL CYSTIC KIDNEY DISEASE [None]
  - PATENT DUCTUS ARTERIOSUS [None]
